FAERS Safety Report 21718338 (Version 2)
Quarter: 2022Q4

REPORT INFORMATION
  Report Type: Spontaneous
  Country: JP (occurrence: JP)
  Receive Date: 20221212
  Receipt Date: 20221226
  Transmission Date: 20230112
  Serious: Yes (Hospitalization)
  Sender: FDA-Public Use
  Company Number: JP-ABBVIE-4229563

PATIENT
  Age: 80 Year
  Sex: Female

DRUGS (2)
  1. RINVOQ [Suspect]
     Active Substance: UPADACITINIB
     Indication: Rheumatoid arthritis
     Dosage: FORM STRENGTH- 7.5 MILLIGRAM
     Route: 048
     Dates: start: 20220224
  2. RINVOQ [Suspect]
     Active Substance: UPADACITINIB
     Indication: Rheumatoid arthritis
     Dosage: DRUG START DATE:  2022 /FORM STRENGTH: 7.5MG
     Route: 048

REACTIONS (2)
  - Pyelonephritis [Recovered/Resolved]
  - Rheumatoid arthritis [Unknown]
